FAERS Safety Report 23457065 (Version 2)
Quarter: 2024Q1

REPORT INFORMATION
  Report Type: Spontaneous
  Country: US (occurrence: US)
  Receive Date: 20240130
  Receipt Date: 20240306
  Transmission Date: 20240410
  Serious: No
  Sender: FDA-Public Use
  Company Number: US-Westminster Pharmaceuticals, LLC-2152272

PATIENT
  Sex: Female

DRUGS (1)
  1. SODIUM FLUORIDE 5000 PLUS [Suspect]
     Active Substance: SODIUM FLUORIDE
     Route: 004
     Dates: start: 20240129, end: 20240129

REACTIONS (1)
  - Tongue ulceration [Not Recovered/Not Resolved]

NARRATIVE: CASE EVENT DATE: 20240129
